FAERS Safety Report 22090939 (Version 7)
Quarter: 2023Q4

REPORT INFORMATION
  Report Type: Spontaneous
  Country: US (occurrence: US)
  Receive Date: 20230314
  Receipt Date: 20231121
  Transmission Date: 20240109
  Serious: Yes (Hospitalization, Other)
  Sender: FDA-Public Use
  Company Number: US-BRISTOL-MYERS SQUIBB COMPANY-2023-036775

PATIENT
  Age: 79 Year
  Sex: Female

DRUGS (3)
  1. ORENCIA [Suspect]
     Active Substance: ABATACEPT
     Indication: Product used for unknown indication
     Dosage: FREQ : INJECT 125MG (1 SYRINGE) SUBCUTANEOUSLY ONCE A WEEK
     Route: 058
  2. ORENCIA [Suspect]
     Active Substance: ABATACEPT
     Dosage: FREQ : INJECT 125MG (1 SYRINGE) SUBCUTANEOUSLY ONCE A WEEK
     Route: 058
  3. ORENCIA [Suspect]
     Active Substance: ABATACEPT
     Indication: Product used for unknown indication
     Route: 048

REACTIONS (15)
  - Osteoarthritis [Unknown]
  - Limb injury [Unknown]
  - Pain [Unknown]
  - COVID-19 [Unknown]
  - Neck injury [Unknown]
  - Breast cancer [Unknown]
  - Bone disorder [Unknown]
  - Fibromyalgia [Unknown]
  - Procedural pain [Unknown]
  - Renal disorder [Unknown]
  - Back pain [Unknown]
  - Micturition urgency [Unknown]
  - Urine output decreased [Unknown]
  - Infection [Unknown]
  - Off label use [Unknown]

NARRATIVE: CASE EVENT DATE: 20230428
